FAERS Safety Report 6967946-1 (Version None)
Quarter: 2010Q3

REPORT INFORMATION
  Report Type: 
  Country: None (occurrence: None)
  Receive Date: 20100907
  Receipt Date: 20100829
  Transmission Date: 20110219
  Serious: Yes (Other)
  Sender: FDA-Public Use
  Company Number: US-SANOFI-AVENTIS-2010SA052321

PATIENT
  Sex: Male

DRUGS (1)
  1. AMARYL [Suspect]
     Route: 065
     Dates: start: 20050101

REACTIONS (1)
  - PANCREATIC CARCINOMA [None]
